FAERS Safety Report 6174230-5 (Version None)
Quarter: 2009Q2

REPORT INFORMATION
  Report Type: 
  Country: None (occurrence: None)
  Receive Date: 20090430
  Receipt Date: 20080320
  Transmission Date: 20091009
  Serious: No
  Sender: FDA-Public Use
  Company Number: US-ASTRAZENECA-2008UW05707

PATIENT
  Age: 62 Year
  Sex: Female

DRUGS (2)
  1. NEXIUM [Suspect]
     Indication: COUGH
     Route: 048
     Dates: start: 20080311
  2. BENECAR [Concomitant]

REACTIONS (3)
  - ABDOMINAL PAIN UPPER [None]
  - CHEST PAIN [None]
  - FALL [None]
